FAERS Safety Report 4324195-3 (Version None)
Quarter: 2004Q1

REPORT INFORMATION
  Report Type: 
  Country: None (occurrence: None)
  Receive Date: 20040323
  Receipt Date: 20040308
  Transmission Date: 20041129
  Serious: Yes (Hospitalization, Other)
  Sender: FDA-Public Use
  Company Number: 2003127364

PATIENT
  Age: 75 Year
  Sex: Female

DRUGS (10)
  1. NORVASC [Suspect]
     Indication: HYPERTENSION
  2. ACCUPRIL [Suspect]
     Indication: ILL-DEFINED DISORDER
  3. ANTIHYPERTENSIVES [Suspect]
     Indication: HYPERTENSION
  4. HYDROCHLOROTHIAZIDE [Concomitant]
  5. CLONIDINE [Concomitant]
  6. LEVOTHYROXINE SODIUM [Concomitant]
  7. MONTELUKAST SODIUM [Concomitant]
  8. ALBUTEROL SULFATE [Concomitant]
  9. CALCIUM [Concomitant]
  10. DILTIAZEM HYDROCHLORIDE [Concomitant]

REACTIONS (4)
  - ARTERIAL OCCLUSIVE DISEASE [None]
  - JOINT SWELLING [None]
  - OEDEMA PERIPHERAL [None]
  - VERTIGO [None]
